FAERS Safety Report 13465981 (Version 6)
Quarter: 2018Q3

REPORT INFORMATION
  Report Type: Spontaneous
  Country: US (occurrence: US)
  Receive Date: 20170421
  Receipt Date: 20180814
  Transmission Date: 20181010
  Serious: Yes (Other)
  Sender: FDA-Public Use
  Company Number: US-PFIZER INC-2017132564

PATIENT
  Age: 65 Year
  Sex: Female
  Weight: 63.49 kg

DRUGS (6)
  1. IBRANCE [Suspect]
     Active Substance: PALBOCICLIB
     Indication: BREAST CANCER METASTATIC
     Dosage: 125 MG, CYCLIC [DAYS 1?21 Q28 DAYS]
     Route: 048
     Dates: start: 20170325
  2. IBRANCE [Suspect]
     Active Substance: PALBOCICLIB
     Dosage: 75 MG, CYCLIC (D1?21 Q 28 DAYS)
     Route: 048
     Dates: start: 20170325
  3. IBRANCE [Suspect]
     Active Substance: PALBOCICLIB
     Dosage: 75 MG, CYCLIC (D1?21 Q 28 DAYS)
     Route: 048
     Dates: start: 20170325
  4. FASLODEX [Concomitant]
     Active Substance: FULVESTRANT
     Dosage: UNK
  5. IBRANCE [Suspect]
     Active Substance: PALBOCICLIB
     Dosage: 75 MG, CYCLIC (DAY1?21 Q28 DAYS, 1 DAILY X 21 DAYS THEN 7 DAYS OFF)
     Route: 048
     Dates: start: 20170325
  6. LETROZOLE. [Concomitant]
     Active Substance: LETROZOLE
     Dosage: UNK

REACTIONS (9)
  - Respiratory tract congestion [Unknown]
  - Neoplasm progression [Unknown]
  - Cough [Recovering/Resolving]
  - Pain in extremity [Unknown]
  - Gait disturbance [Unknown]
  - Spinal compression fracture [Unknown]
  - White blood cell count decreased [Unknown]
  - Diarrhoea [Recovering/Resolving]
  - Eye disorder [Unknown]

NARRATIVE: CASE EVENT DATE: 2017
